FAERS Safety Report 23300553 (Version 1)
Quarter: 2023Q4

REPORT INFORMATION
  Report Type: Spontaneous
  Country: US (occurrence: US)
  Receive Date: 20231215
  Receipt Date: 20231215
  Transmission Date: 20240110
  Serious: No
  Sender: FDA-Public Use
  Company Number: US-ABBVIE-2301053US

PATIENT

DRUGS (1)
  1. BOTOX [Suspect]
     Active Substance: ONABOTULINUMTOXINA
     Indication: Torticollis
     Dosage: TIME INTERVAL: AS NECESSARY: DOSE DESC: UNK, SINGLE

REACTIONS (1)
  - Muscle atrophy [Unknown]
